FAERS Safety Report 16975506 (Version 2)
Quarter: 2019Q4

REPORT INFORMATION
  Report Type: Spontaneous
  Country: FR (occurrence: FR)
  Receive Date: 20191030
  Receipt Date: 20191128
  Transmission Date: 20200122
  Serious: Yes (Hospitalization)
  Sender: FDA-Public Use
  Company Number: FR-009507513-1910FRA014422

PATIENT
  Age: 41 Year
  Sex: Female
  Weight: 67 kg

DRUGS (4)
  1. MEROPENEM KABI [Suspect]
     Active Substance: MEROPENEM
     Indication: PERITONITIS
     Dosage: 1 DOSAGE FORM, QD, POWDER FOR SOLUTION FOR INJECTION OR FOR INFUSION
     Route: 041
     Dates: start: 20190916, end: 20190926
  2. CANCIDAS [Suspect]
     Active Substance: CASPOFUNGIN ACETATE
     Dosage: 260 MICROL, QD, POWDER FOR SOLUTION FOR INFUSION
     Route: 041
     Dates: start: 20190825, end: 20190919
  3. ERYTHROCIN [Concomitant]
     Active Substance: ERYTHROMYCIN LACTOBIONATE
     Indication: PERITONITIS
     Dosage: 1 DOSAGE FORM, QD, LYOPHILISATE FOR PARENTERAL USE (IV)
     Route: 042
     Dates: start: 20190916
  4. PIPERACILLIN AND TAZOBACTAM [Concomitant]
     Active Substance: PIPERACILLIN SODIUM\TAZOBACTAM SODIUM
     Dosage: 4 DOSAGE FORM, QD
     Route: 042
     Dates: start: 20190909, end: 20190916

REACTIONS (1)
  - Drug reaction with eosinophilia and systemic symptoms [Recovering/Resolving]

NARRATIVE: CASE EVENT DATE: 20190916
